FAERS Safety Report 24802098 (Version 2)
Quarter: 2025Q1

REPORT INFORMATION
  Report Type: Spontaneous
  Country: US (occurrence: US)
  Receive Date: 20250102
  Receipt Date: 20250119
  Transmission Date: 20250409
  Serious: No
  Sender: AMGEN
  Company Number: US-AMGEN-USASP2024255551

PATIENT
  Sex: Male

DRUGS (3)
  1. REPATHA [Suspect]
     Active Substance: EVOLOCUMAB
     Indication: Product used for unknown indication
     Route: 065
  2. SOTALOL [Concomitant]
     Active Substance: SOTALOL
     Route: 065
     Dates: start: 202409
  3. BRILINTA [Concomitant]
     Active Substance: TICAGRELOR
     Dates: start: 202409

REACTIONS (2)
  - Dehydration [Unknown]
  - Ventricular extrasystoles [Unknown]

NARRATIVE: CASE EVENT DATE: 20240101
